FAERS Safety Report 19498370 (Version 1)
Quarter: 2021Q3

REPORT INFORMATION
  Report Type: Spontaneous
  Country: FR (occurrence: FR)
  Receive Date: 20210706
  Receipt Date: 20210706
  Transmission Date: 20211014
  Serious: Yes (Other)
  Sender: FDA-Public Use
  Company Number: FR-LUPIN PHARMACEUTICALS INC.-2021-10933

PATIENT
  Sex: Male

DRUGS (2)
  1. SILDENAFIL. [Suspect]
     Active Substance: SILDENAFIL
     Indication: PRODUCT USED FOR UNKNOWN INDICATION
     Dosage: UNK, THE PATIENT RECEIVED 5 DOSES OF TOTAL 500MG DURING 40?HOUR SESSION, SILDENAFIL 100 MG
     Route: 065
  2. GAMMA?BUTYROLACTONE [Suspect]
     Active Substance: BUTYROLACTONE
     Indication: PRODUCT USED FOR UNKNOWN INDICATION
     Dosage: 13.9 MILLILITER (PATIENT RECEIVED 10 DOSES, TOTAL 13.9 ML DURING 40?HOUR SESSION)
     Route: 065

REACTIONS (1)
  - Drug abuse [Unknown]
